FAERS Safety Report 26172971 (Version 2)
Quarter: 2025Q4

REPORT INFORMATION
  Report Type: Report from Study
  Country: CA (occurrence: CA)
  Receive Date: 20251218
  Receipt Date: 20251223
  Transmission Date: 20260117
  Serious: Yes (Hospitalization, Other)
  Sender: ABBVIE
  Company Number: CA-ABBVIE-6590419

PATIENT
  Sex: Male

DRUGS (1)
  1. HUMIRA [Suspect]
     Active Substance: ADALIMUMAB
     Indication: Crohn^s disease
     Route: 058

REACTIONS (6)
  - Abdominal pain [Recovered/Resolved]
  - Ileal stenosis [Unknown]
  - Rectal haemorrhage [Unknown]
  - C-reactive protein abnormal [Unknown]
  - Fistula of small intestine [Unknown]
  - Enteritis [Unknown]
